FAERS Safety Report 6872147-1 (Version None)
Quarter: 2010Q3

REPORT INFORMATION
  Report Type: 
  Country: None (occurrence: None)
  Receive Date: 20100723
  Receipt Date: 20100715
  Transmission Date: 20110219
  Serious: Yes (Other)
  Sender: FDA-Public Use
  Company Number: CHPA2010NL11619

PATIENT
  Sex: Female

DRUGS (2)
  1. NICOTINELL TTS 30 (NCH) [Suspect]
     Indication: SMOKING CESSATION THERAPY
     Dosage: 21 MG, QD
     Route: 062
     Dates: start: 20100617, end: 20100629
  2. NICORETTE MICROTAB [Suspect]
     Dosage: 2 MG, UNK

REACTIONS (4)
  - MAJOR DEPRESSION [None]
  - OVERDOSE [None]
  - SUICIDAL IDEATION [None]
  - TREATMENT NONCOMPLIANCE [None]
